FAERS Safety Report 17500854 (Version 1)
Quarter: 2020Q1

REPORT INFORMATION
  Report Type: Spontaneous
  Country: DE (occurrence: DE)
  Receive Date: 20200305
  Receipt Date: 20200305
  Transmission Date: 20200409
  Serious: No
  Sender: FDA-Public Use
  Company Number: DE-LUPIN PHARMACEUTICALS INC.-2020-00700

PATIENT
  Age: 53 Year
  Sex: Female

DRUGS (4)
  1. GABAPENTIN. [Suspect]
     Active Substance: GABAPENTIN
     Indication: ORTHOSTATIC TREMOR
     Dosage: 2400 MILLIGRAM, QD
     Route: 065
  2. CLONAZEPAM. [Suspect]
     Active Substance: CLONAZEPAM
     Indication: ORTHOSTATIC TREMOR
     Dosage: 4 MILLIGRAM, QD
     Route: 065
  3. PROPRANOLOL [Suspect]
     Active Substance: PROPRANOLOL HYDROCHLORIDE
     Indication: ORTHOSTATIC TREMOR
     Dosage: UNK
     Route: 065
  4. PRIMIDONE. [Suspect]
     Active Substance: PRIMIDONE
     Indication: ORTHOSTATIC TREMOR
     Dosage: 500 MILLIGRAM, QD
     Route: 065

REACTIONS (4)
  - Disease progression [Recovering/Resolving]
  - Therapeutic response decreased [Unknown]
  - Orthostatic tremor [Recovering/Resolving]
  - Drug resistance [Unknown]
